FAERS Safety Report 23784684 (Version 4)
Quarter: 2024Q3

REPORT INFORMATION
  Report Type: Spontaneous
  Country: US (occurrence: US)
  Receive Date: 20240425
  Receipt Date: 20240722
  Transmission Date: 20241016
  Serious: Yes (Other)
  Sender: NOVARTIS
  Company Number: US-002147023-NVSC2024US088120

PATIENT
  Age: 76 Year
  Sex: Female

DRUGS (4)
  1. COSENTYX [Suspect]
     Active Substance: SECUKINUMAB
     Indication: Pain
     Dosage: 300 MG, QMO
     Route: 058
     Dates: start: 20240424, end: 20240424
  2. COSENTYX [Suspect]
     Active Substance: SECUKINUMAB
     Indication: Arthralgia
     Dosage: 300 MG, QW (300/2 MG)
     Route: 058
  3. COSENTYX [Suspect]
     Active Substance: SECUKINUMAB
     Indication: Psoriasis
  4. COSENTYX [Suspect]
     Active Substance: SECUKINUMAB
     Indication: Psoriatic arthropathy

REACTIONS (4)
  - Neoplasm malignant [Unknown]
  - Loss of consciousness [Unknown]
  - Arthralgia [Not Recovered/Not Resolved]
  - Vomiting [Unknown]

NARRATIVE: CASE EVENT DATE: 20240424
